FAERS Safety Report 8012363-9 (Version None)
Quarter: 2011Q4

REPORT INFORMATION
  Report Type: 
  Country: None (occurrence: None)
  Receive Date: 20111228
  Receipt Date: 20111221
  Transmission Date: 20120403
  Serious: Yes (Death)
  Sender: FDA-Public Use
  Company Number: JP-AMGEN-JPNCT2011069036

PATIENT
  Age: 87 Year
  Sex: Male

DRUGS (3)
  1. IRINOTECAN HCL [Concomitant]
     Indication: COLON CANCER RECURRENT
     Route: 041
     Dates: start: 20110101
  2. PANITUMUMAB [Suspect]
     Indication: COLORECTAL CANCER
     Dosage: UNK UNK, Q2WK
     Route: 041
     Dates: start: 20110101
  3. TS 1 [Concomitant]
     Indication: COLON CANCER RECURRENT
     Dosage: UNK
     Route: 048
     Dates: start: 20110101

REACTIONS (1)
  - INTERSTITIAL LUNG DISEASE [None]
